FAERS Safety Report 17540186 (Version 1)
Quarter: 2020Q1

REPORT INFORMATION
  Report Type: Spontaneous
  Country: FR (occurrence: FR)
  Receive Date: 20200313
  Receipt Date: 20200313
  Transmission Date: 20200409
  Serious: Yes (Life-Threatening)
  Sender: FDA-Public Use
  Company Number: NVSC2020FR070764

PATIENT
  Age: 43 Year
  Sex: Female
  Weight: 72.8 kg

DRUGS (1)
  1. PARACETAMOL [Suspect]
     Active Substance: ACETAMINOPHEN
     Indication: PRODUCT ADMINISTRATION ERROR
     Dosage: UNK
     Route: 048
     Dates: start: 20191015, end: 20191028

REACTIONS (4)
  - Incorrect dose administered [Recovered/Resolved]
  - Hepatitis acute [Recovering/Resolving]
  - Overdose [Recovered/Resolved]
  - Product administration error [Recovered/Resolved]

NARRATIVE: CASE EVENT DATE: 20191015
